FAERS Safety Report 15821807 (Version 1)
Quarter: 2018Q4

REPORT INFORMATION
  Report Type: Spontaneous
  Country: US (occurrence: US)
  Receive Date: 20181217
  Receipt Date: 20181217
  Transmission Date: 20190205
  Serious: Yes (Hospitalization)
  Sender: FDA-Public Use
  Company Number: None

PATIENT
  Age: 75 Year
  Sex: Male
  Weight: 92.6 kg

DRUGS (2)
  1. ETOPOSIDE (VP-16) [Concomitant]
     Active Substance: ETOPOSIDE
  2. CARBOPLATIN (241240) [Suspect]
     Active Substance: CARBOPLATIN

REACTIONS (1)
  - Full blood count decreased [None]

NARRATIVE: CASE EVENT DATE: 20181210
